FAERS Safety Report 23804649 (Version 1)
Quarter: 2024Q2

REPORT INFORMATION
  Report Type: Report from Study
  Country: DE (occurrence: DE)
  Receive Date: 20240501
  Receipt Date: 20240501
  Transmission Date: 20240715
  Serious: Yes (Other)
  Sender: FDA-Public Use
  Company Number: DE-ALNYLAM PHARMACEUTICALS, INC.-ALN-2024-002319

PATIENT

DRUGS (3)
  1. GIVLAARI [Suspect]
     Active Substance: GIVOSIRAN SODIUM
     Indication: Product used for unknown indication
     Dosage: UNK
     Route: 065
  2. GIVLAARI [Suspect]
     Active Substance: GIVOSIRAN SODIUM
     Dosage: 155 (UNITS NOT REPORTED), 4 WEEKLY
     Route: 065
     Dates: start: 20240420, end: 20240420
  3. POTASSIUM [Concomitant]
     Active Substance: POTASSIUM
     Indication: Familial periodic paralysis
     Dosage: UNK UNK, QD
     Route: 048
     Dates: start: 202403

REACTIONS (1)
  - Quadriplegia [Recovered/Resolved]

NARRATIVE: CASE EVENT DATE: 20240420
